FAERS Safety Report 20831880 (Version 1)
Quarter: 2022Q2

REPORT INFORMATION
  Report Type: Spontaneous
  Country: IT (occurrence: IT)
  Receive Date: 20220516
  Receipt Date: 20220516
  Transmission Date: 20220720
  Serious: Yes (Other)
  Sender: FDA-Public Use
  Company Number: IT-MINISAL02-864176

PATIENT
  Age: 77 Year
  Sex: Male

DRUGS (5)
  1. RAMIPRIL [Suspect]
     Active Substance: RAMIPRIL
     Indication: Hypertension
     Dosage: 10 MILLIGRAM, ONCE A DAY
     Route: 048
     Dates: start: 20220101, end: 20220409
  2. AMYLMETACRESOL\DICHLOROBENZYL ALCOHOL [Suspect]
     Active Substance: AMYLMETACRESOL\DICHLOROBENZYL ALCOHOL
     Indication: Oropharyngeal pain
     Dosage: UNK
     Route: 065
     Dates: start: 20220409, end: 20220409
  3. EZETIMIBE [Concomitant]
     Active Substance: EZETIMIBE
     Indication: Product used for unknown indication
     Dosage: UNK
     Route: 065
  4. TAMSULOSIN HYDROCHLORIDE [Concomitant]
     Active Substance: TAMSULOSIN HYDROCHLORIDE
     Indication: Product used for unknown indication
     Dosage: UNK
     Route: 065
  5. ROSUVASTATIN [Concomitant]
     Active Substance: ROSUVASTATIN
     Indication: Product used for unknown indication
     Dosage: UNK
     Route: 065

REACTIONS (1)
  - Tongue oedema [Recovering/Resolving]

NARRATIVE: CASE EVENT DATE: 20220409
